FAERS Safety Report 19526229 (Version 1)
Quarter: 2021Q3

REPORT INFORMATION
  Report Type: Spontaneous
  Country: US (occurrence: US)
  Receive Date: 20210713
  Receipt Date: 20210713
  Transmission Date: 20211014
  Serious: No
  Sender: FDA-Public Use
  Company Number: None

PATIENT
  Age: 66 Year
  Sex: Male
  Weight: 53.52 kg

DRUGS (1)
  1. LIDOCAINE (LIDOCAINE HCL 4% INJ) [Suspect]
     Active Substance: LIDOCAINE HYDROCHLORIDE
     Indication: BRONCHOSCOPY
     Dates: start: 20210603, end: 20210603

REACTIONS (8)
  - Urticaria [None]
  - Rash [None]
  - Tachypnoea [None]
  - Dyspnoea [None]
  - Tachycardia [None]
  - Hypoxia [None]
  - Pruritus [None]
  - Oxygen saturation decreased [None]

NARRATIVE: CASE EVENT DATE: 20210603
